FAERS Safety Report 5226770-0 (Version None)
Quarter: 2007Q1

REPORT INFORMATION
  Report Type: 
  Country: None (occurrence: None)
  Receive Date: 20070120
  Receipt Date: 20060324
  Transmission Date: 20070707
  Serious: Yes (Life-Threatening)
  Sender: FDA-Public Use
  Company Number: 02100-EUR-06-0020

PATIENT
  Age: 73 Year
  Sex: Male

DRUGS (9)
  1. CILOSTAZOL [Suspect]
     Indication: PERIPHERAL VASCULAR DISORDER
     Dosage: 200 MG
     Route: 048
     Dates: start: 20051027, end: 20051209
  2. CARVEDILOL [Concomitant]
  3. LEVOTHYROXINE SODIUM [Concomitant]
  4. FRUSEMIDE [Concomitant]
  5. AMIODARONE HCL [Concomitant]
  6. ISOSORBIDE MONONITRATE [Concomitant]
  7. ATORVASTATIN [Concomitant]
  8. WARFARIN SODIUM [Concomitant]
  9. SPIRONOLACTONE [Concomitant]

REACTIONS (1)
  - VENTRICULAR TACHYCARDIA [None]
